FAERS Safety Report 5286707-5 (Version None)
Quarter: 2007Q1

REPORT INFORMATION
  Report Type: 
  Country: None (occurrence: None)
  Receive Date: 20070116
  Receipt Date: 20061113
  Transmission Date: 20070707
  Serious: No
  Sender: FDA-Public Use
  Company Number: 2006SP004020

PATIENT
  Age: 71 Year
  Sex: Male
  Weight: 87.0906 kg

DRUGS (3)
  1. LUNESTA [Suspect]
     Indication: SLEEP DISORDER
     Dosage: 3 MG; PRN; ORAL
     Route: 048
     Dates: start: 20061101, end: 20061110
  2. VASOTEC [Concomitant]
  3. WATER PILLS [Concomitant]

REACTIONS (3)
  - DRUG INEFFECTIVE [None]
  - INSOMNIA [None]
  - SOMNOLENCE [None]
